FAERS Safety Report 7418717-3 (Version None)
Quarter: 2011Q2

REPORT INFORMATION
  Report Type: 
  Country: None (occurrence: None)
  Receive Date: 20110415
  Receipt Date: 20110406
  Transmission Date: 20111010
  Serious: Yes (Hospitalization)
  Sender: FDA-Public Use
  Company Number: BE-BAYER-2011-030034

PATIENT

DRUGS (1)
  1. PATIENT SUPPORT PROGRAM FOR NEXAVAR (SORAFENIB) [Suspect]
     Dosage: DAILY DOSE 800 MG
     Dates: start: 20110216

REACTIONS (4)
  - HYPOTENSION [None]
  - GASTRIC HAEMORRHAGE [None]
  - FAECES DISCOLOURED [None]
  - GASTRITIS [None]
